FAERS Safety Report 14604437 (Version 3)
Quarter: 2018Q2

REPORT INFORMATION
  Report Type: Spontaneous
  Country: JP (occurrence: JP)
  Receive Date: 20180306
  Receipt Date: 20180417
  Transmission Date: 20180711
  Serious: Yes (Hospitalization, Other)
  Sender: FDA-Public Use
  Company Number: JP-OTSUKA-2018_005558

PATIENT
  Age: 46 Year
  Sex: Male
  Weight: 56.2 kg

DRUGS (7)
  1. SALOBEL [Concomitant]
     Active Substance: ALLOPURINOL
     Indication: PRODUCT USED FOR UNKNOWN INDICATION
     Dosage: UNK
     Route: 065
     Dates: start: 20120919
  2. LOSARTAN K [Concomitant]
     Active Substance: LOSARTAN POTASSIUM
     Indication: PRODUCT USED FOR UNKNOWN INDICATION
     Dosage: UNK
     Route: 065
     Dates: start: 20150408
  3. MYSER [Concomitant]
     Active Substance: DIFLUPREDNATE
     Indication: PRODUCT USED FOR UNKNOWN INDICATION
     Dosage: UNK
     Route: 065
     Dates: start: 20120104
  4. LOCOID [Concomitant]
     Active Substance: HYDROCORTISONE BUTYRATE
     Indication: PRODUCT USED FOR UNKNOWN INDICATION
     Dosage: UNK
     Route: 065
     Dates: start: 20170419
  5. SAMSCA [Suspect]
     Active Substance: TOLVAPTAN
     Indication: CONGENITAL CYSTIC KIDNEY DISEASE
     Dosage: 45 MG, QD, MORNING
     Route: 048
     Dates: start: 20171103, end: 20180110
  6. SAMSCA [Suspect]
     Active Substance: TOLVAPTAN
     Dosage: 15 MG, QD, EVENING
     Route: 048
     Dates: start: 20171103, end: 20180110
  7. SAMSCA [Suspect]
     Active Substance: TOLVAPTAN
     Dosage: 30 MG, QD, MORNING
     Route: 048
     Dates: start: 20180110, end: 20180221

REACTIONS (2)
  - Inappropriate schedule of drug administration [Unknown]
  - Hepatic function abnormal [Recovering/Resolving]

NARRATIVE: CASE EVENT DATE: 20180110
